FAERS Safety Report 6425317-0 (Version None)
Quarter: 2009Q4

REPORT INFORMATION
  Report Type: 
  Country: None (occurrence: None)
  Receive Date: 20091103
  Receipt Date: 20091027
  Transmission Date: 20100525
  Serious: Yes (Death, Hospitalization, Congenital Anomaly)
  Sender: FDA-Public Use
  Company Number: A0680229A

PATIENT
  Sex: Female

DRUGS (3)
  1. PAXIL [Suspect]
     Indication: DEPRESSION
     Dosage: 20MG PER DAY
     Dates: start: 19931101, end: 20061201
  2. PAROXETINE HCL [Suspect]
     Indication: DEPRESSION
     Dosage: 50MG PER DAY
     Dates: start: 20030101, end: 20051001
  3. VITAMIN TAB [Concomitant]

REACTIONS (12)
  - ACIDOSIS [None]
  - ASPHYXIA [None]
  - BRAIN INJURY [None]
  - CARDIAC ARREST [None]
  - CARDIAC FAILURE [None]
  - CONVULSION [None]
  - DRUG EXPOSURE DURING PREGNANCY [None]
  - HEPATIC FUNCTION ABNORMAL [None]
  - MULTIPLE CONGENITAL ABNORMALITIES [None]
  - PERSISTENT FOETAL CIRCULATION [None]
  - RESPIRATORY FAILURE [None]
  - SEPSIS [None]
